FAERS Safety Report 22644403 (Version 7)
Quarter: 2023Q4

REPORT INFORMATION
  Report Type: Spontaneous
  Country: CA (occurrence: CA)
  Receive Date: 20230627
  Receipt Date: 20231211
  Transmission Date: 20240110
  Serious: Yes (Other)
  Sender: FDA-Public Use
  Company Number: CA-PFIZER INC-202300114440

PATIENT
  Age: 13 Year
  Sex: Male

DRUGS (2)
  1. GENOTROPIN [Suspect]
     Active Substance: SOMATROPIN
     Indication: Congenital osteodystrophy
     Dosage: 2 MG, CYCLIC, EVERY 6 DAYS
     Route: 058
     Dates: start: 20230223, end: 2023
  2. GENOTROPIN [Suspect]
     Active Substance: SOMATROPIN
     Dosage: 2.25 MG (1 DF), 6 TIMES/WEEK (0.3 MG/KG/WEEK)
     Route: 058
     Dates: start: 2023

REACTIONS (11)
  - Tympanic membrane perforation [Unknown]
  - Syncope [Unknown]
  - Arthralgia [Unknown]
  - Blood parathyroid hormone increased [Unknown]
  - Dizziness postural [Unknown]
  - Stress [Unknown]
  - Anxiety [Unknown]
  - Sleep disorder [Unknown]
  - Off label use [Unknown]
  - Drug delivery system malfunction [Unknown]
  - Drug dose omission by device [Unknown]

NARRATIVE: CASE EVENT DATE: 20230101
